FAERS Safety Report 7224015-3 (Version None)
Quarter: 2011Q1

REPORT INFORMATION
  Report Type: 
  Country: None (occurrence: None)
  Receive Date: 20110113
  Receipt Date: 20110104
  Transmission Date: 20110831
  Serious: No
  Sender: FDA-Public Use
  Company Number: US-BIOGENIDEC-2011BI001057

PATIENT
  Age: 51 Year
  Sex: Female

DRUGS (4)
  1. AVONEX [Concomitant]
     Indication: MULTIPLE SCLEROSIS
     Route: 030
  2. AVONEX [Concomitant]
     Route: 030
     Dates: start: 20001204, end: 20010901
  3. TYSABRI [Suspect]
     Indication: MULTIPLE SCLEROSIS
     Route: 042
     Dates: start: 20101005
  4. TYSABRI [Suspect]
     Route: 042
     Dates: start: 20070809, end: 20091029

REACTIONS (3)
  - FATIGUE [None]
  - PYREXIA [None]
  - OROPHARYNGEAL PAIN [None]
